FAERS Safety Report 5167697-2 (Version None)
Quarter: 2006Q4

REPORT INFORMATION
  Report Type: 
  Country: None (occurrence: None)
  Receive Date: 20061201
  Receipt Date: 20061201
  Transmission Date: 20070319
  Serious: Yes (Death)
  Sender: FDA-Public Use
  Company Number: None

PATIENT
  Age: 88 Year
  Sex: Male
  Weight: 36.2878 kg

DRUGS (1)
  1. NAMENDA [Suspect]

REACTIONS (6)
  - ASTHENIA [None]
  - BLINDNESS [None]
  - BONE PAIN [None]
  - DEMENTIA ALZHEIMER'S TYPE [None]
  - STARVATION [None]
  - WEIGHT DECREASED [None]
